FAERS Safety Report 6382297-4 (Version None)
Quarter: 2009Q3

REPORT INFORMATION
  Report Type: 
  Country: None (occurrence: None)
  Receive Date: 20090928
  Receipt Date: 20090928
  Transmission Date: 20100115
  Serious: Yes (Other)
  Sender: FDA-Public Use
  Company Number: None

PATIENT
  Age: 46 Year
  Sex: Female
  Weight: 72.7 kg

DRUGS (1)
  1. TOPIRIMATE 200MG TID [Suspect]
     Indication: SURGERY
     Dosage: 200MG TID ORAL
     Route: 048
     Dates: start: 20090601

REACTIONS (3)
  - COUGH [None]
  - RESPIRATORY DISORDER [None]
  - RESPIRATORY TRACT CONGESTION [None]
